FAERS Safety Report 19919026 (Version 1)
Quarter: 2021Q4

REPORT INFORMATION
  Report Type: Report from Study
  Country: US (occurrence: US)
  Receive Date: 20211005
  Receipt Date: 20211005
  Transmission Date: 20220304
  Serious: No
  Sender: FDA-Public Use
  Company Number: US-NOVARTISTESTPH-NVSC2021US226159

PATIENT
  Sex: Female

DRUGS (2)
  1. COSENTYX [Suspect]
     Active Substance: SECUKINUMAB
     Indication: Psoriasis
     Dosage: 300 MG, QMO
     Route: 058
  2. COSENTYX [Suspect]
     Active Substance: SECUKINUMAB
     Indication: Psoriatic arthropathy

REACTIONS (8)
  - Alopecia [Unknown]
  - Hyperhidrosis [Unknown]
  - Dysmenorrhoea [Unknown]
  - Menopause [Unknown]
  - Menstruation irregular [Unknown]
  - Hot flush [Unknown]
  - Headache [Unknown]
  - Dry skin [Unknown]
